FAERS Safety Report 11134968 (Version 1)
Quarter: 2015Q2

REPORT INFORMATION
  Report Type: Spontaneous
  Country: GR (occurrence: GR)
  Receive Date: 20150525
  Receipt Date: 20150525
  Transmission Date: 20150821
  Serious: Yes (Other)
  Sender: FDA-Public Use
  Company Number: GR-B.I. PHARMACEUTICALS,INC./RIDGEFIELD-2015-BI-26343GB

PATIENT
  Age: 65 Year
  Sex: Female

DRUGS (1)
  1. PERSANTIN [Suspect]
     Active Substance: DIPYRIDAMOLE
     Indication: CARDIOMYOPATHY
     Dosage: STRENGTH: 5MG/ML
     Route: 042
     Dates: start: 20150514, end: 20150514

REACTIONS (4)
  - Vomiting [Not Recovered/Not Resolved]
  - Epilepsy [Recovered/Resolved]
  - Off label use [Recovered/Resolved]
  - Abdominal pain upper [Recovered/Resolved]

NARRATIVE: CASE EVENT DATE: 20150514
